FAERS Safety Report 21647573 (Version 4)
Quarter: 2024Q3

REPORT INFORMATION
  Report Type: Report from Study
  Country: PA (occurrence: PA)
  Receive Date: 20221128
  Receipt Date: 20240809
  Transmission Date: 20241016
  Serious: Yes (Other)
  Sender: NOVARTIS
  Company Number: PA-002147023-NVSC2022PA264116

PATIENT
  Sex: Female
  Weight: 86.168 kg

DRUGS (2)
  1. KISQALI [Suspect]
     Active Substance: RIBOCICLIB
     Indication: Breast cancer metastatic
     Dosage: 600 MG, QD (3 TABLETS) (CYCLE OF 21 DAYS)
     Route: 048
     Dates: start: 2020
  2. ANASTROZOLE [Suspect]
     Active Substance: ANASTROZOLE
     Indication: Breast cancer
     Dosage: 1 DOSAGE FORM, QD (TABLET)
     Route: 065
     Dates: start: 2020

REACTIONS (8)
  - Syncope [Unknown]
  - Metastases to bone [Recovered/Resolved]
  - Dizziness [Recovered/Resolved]
  - Anxiety [Unknown]
  - Nasopharyngitis [Unknown]
  - Viral diarrhoea [Unknown]
  - Malaise [Unknown]
  - Diarrhoea [Unknown]

NARRATIVE: CASE EVENT DATE: 20200101
